FAERS Safety Report 4726663-9 (Version None)
Quarter: 2005Q3

REPORT INFORMATION
  Report Type: 
  Country: None (occurrence: None)
  Receive Date: 20050725
  Receipt Date: 20050505
  Transmission Date: 20060218
  Serious: No
  Sender: FDA-Public Use
  Company Number: USA050597410

PATIENT
  Age: 48 Year
  Sex: Female

DRUGS (1)
  1. STRATTERA [Suspect]
     Dosage: 60 MG DAY
     Dates: start: 20041101

REACTIONS (1)
  - STOMACH DISCOMFORT [None]
